FAERS Safety Report 13695513 (Version 1)
Quarter: 2017Q2

REPORT INFORMATION
  Report Type: Spontaneous
  Country: US (occurrence: US)
  Receive Date: 20170627
  Receipt Date: 20170627
  Transmission Date: 20170830
  Serious: Yes (Other)
  Sender: FDA-Public Use
  Company Number: US-PFIZER INC-2017273655

PATIENT
  Sex: Male

DRUGS (1)
  1. XELJANZ XR [Suspect]
     Active Substance: TOFACITINIB CITRATE
     Dosage: 11 MG, DAILY

REACTIONS (12)
  - Rheumatoid arthritis [Unknown]
  - Muscular weakness [Unknown]
  - Dyspepsia [Unknown]
  - Back pain [Unknown]
  - Sleep disorder [Unknown]
  - Poor quality sleep [Unknown]
  - Fatigue [Unknown]
  - Nodal osteoarthritis [Unknown]
  - Arthralgia [Unknown]
  - Headache [Unknown]
  - Rash macular [Unknown]
  - Myalgia [Unknown]
